FAERS Safety Report 11441498 (Version 1)
Quarter: 2015Q3

REPORT INFORMATION
  Report Type: Spontaneous
  Country: US (occurrence: US)
  Receive Date: 20150901
  Receipt Date: 20150901
  Transmission Date: 20151125
  Serious: No
  Sender: FDA-Public Use
  Company Number: US-BAYER-2015-412548

PATIENT
  Sex: Female

DRUGS (2)
  1. ALEVE [Suspect]
     Active Substance: NAPROXEN SODIUM
     Indication: NASAL CONGESTION
  2. ALEVE [Suspect]
     Active Substance: NAPROXEN SODIUM
     Indication: MALAISE

REACTIONS (1)
  - Product use issue [None]
